FAERS Safety Report 17942269 (Version 2)
Quarter: 2020Q2

REPORT INFORMATION
  Report Type: Spontaneous
  Country: US (occurrence: US)
  Receive Date: 20200624
  Receipt Date: 20200626
  Transmission Date: 20200714
  Serious: Yes (Death, Hospitalization, Other)
  Sender: FDA-Public Use
  Company Number: NVSC2020US176315

PATIENT
  Sex: Male
  Weight: 72.57 kg

DRUGS (5)
  1. VALSARTAN ARROW [Suspect]
     Active Substance: VALSARTAN
     Indication: PRODUCT USED FOR UNKNOWN INDICATION
     Route: 065
  2. DIOVAN [Suspect]
     Active Substance: VALSARTAN
     Indication: HYPERTENSION
     Dosage: UNK
     Route: 065
     Dates: start: 20100308, end: 20140519
  3. VALSARTAN AUROBINDO [Suspect]
     Active Substance: VALSARTAN
     Indication: HYPERTENSION
     Dosage: UNK
     Route: 065
     Dates: start: 20170324
  4. VALSARTAN. [Suspect]
     Active Substance: VALSARTAN
     Indication: PRODUCT USED FOR UNKNOWN INDICATION
     Route: 065
  5. VALSARTAN. [Suspect]
     Active Substance: VALSARTAN
     Indication: HYPERTENSION
     Dosage: UNK
     Route: 065
     Dates: start: 20140609, end: 20160803

REACTIONS (11)
  - Respiratory failure [Fatal]
  - Oesophageal carcinoma [Unknown]
  - Neck pain [Unknown]
  - Sepsis [Unknown]
  - Feeding disorder [Unknown]
  - Arteriosclerosis coronary artery [Fatal]
  - Weight decreased [Unknown]
  - Skin cancer [Unknown]
  - Head and neck cancer [Fatal]
  - Exposure to toxic agent [Unknown]
  - Fatigue [Unknown]

NARRATIVE: CASE EVENT DATE: 2011
